FAERS Safety Report 6693943-X (Version None)
Quarter: 2010Q2

REPORT INFORMATION
  Report Type: 
  Country: None (occurrence: None)
  Receive Date: 20100423
  Receipt Date: 20100414
  Transmission Date: 20101027
  Serious: Yes (Other)
  Sender: FDA-Public Use
  Company Number: CA-PFIZER INC-2010040996

PATIENT
  Age: 63 Year
  Sex: Male
  Weight: 77.1 kg

DRUGS (5)
  1. LIPITOR [Suspect]
     Indication: CAROTID ARTERIOSCLEROSIS
     Dosage: 80 MG, 1X/DAY
     Dates: start: 20091001, end: 20100201
  2. LIPITOR [Suspect]
     Indication: TRANSIENT ISCHAEMIC ATTACK
  3. PLAVIX [Concomitant]
     Dosage: 75 MG, 1X/DAY
     Dates: start: 20091001
  4. ASPIRIN [Concomitant]
     Indication: CARDIOVASCULAR EVENT PROPHYLAXIS
     Dosage: 80 MG, 1X/DAY
     Dates: start: 20100101
  5. RAMIPRIL [Concomitant]
     Indication: BLOOD PRESSURE
     Dosage: 1.25 MG, 1X/DAY
     Dates: start: 20091001

REACTIONS (3)
  - FAECAL INCONTINENCE [None]
  - NIGHT SWEATS [None]
  - URINARY INCONTINENCE [None]
